FAERS Safety Report 5412774-1 (Version None)
Quarter: 2007Q3

REPORT INFORMATION
  Report Type: 
  Country: None (occurrence: None)
  Receive Date: 20070813
  Receipt Date: 20070803
  Transmission Date: 20080115
  Serious: Yes (Death)
  Sender: FDA-Public Use
  Company Number: PL-BOEHRINGER INGELHEIM PHARMACEUTICALS, INC.-2007-DE-04503BY

PATIENT
  Sex: Male

DRUGS (4)
  1. PRITOR [Suspect]
     Indication: HYPERTENSION
     Route: 065
     Dates: start: 20070717, end: 20070724
  2. ATORVASTATIN CALCIUM [Concomitant]
     Indication: DRUG USE FOR UNKNOWN INDICATION
     Route: 065
  3. POLOCARD [Concomitant]
     Indication: DRUG USE FOR UNKNOWN INDICATION
     Route: 065
  4. BETALOC ZOK [Concomitant]
     Indication: DRUG USE FOR UNKNOWN INDICATION
     Route: 065

REACTIONS (1)
  - CIRCULATORY COLLAPSE [None]
